FAERS Safety Report 26192053 (Version 1)
Quarter: 2025Q4

REPORT INFORMATION
  Report Type: Spontaneous
  Country: HK (occurrence: HK)
  Receive Date: 20251223
  Receipt Date: 20251223
  Transmission Date: 20260117
  Serious: Yes (Other)
  Sender: SANOFI AVENTIS
  Company Number: HK-DialogSolutions-SAAVPROD-PI854437-C2

PATIENT
  Sex: Male

DRUGS (6)
  1. ANTI-THYMOCYTE GLOBULIN (RABBIT) NOS [Suspect]
     Active Substance: LAPINE T-LYMPHOCYTE IMMUNE GLOBULIN
     Indication: B-cell type acute leukaemia
  2. FLUDARABINE PHOSPHATE [Suspect]
     Active Substance: FLUDARABINE PHOSPHATE
     Indication: B-cell type acute leukaemia
     Dosage: 150 MG/M2
  3. THIOTEPA [Suspect]
     Active Substance: THIOTEPA
     Indication: B-cell type acute leukaemia
     Dosage: 10 MG/KG
  4. BUSULFAN [Suspect]
     Active Substance: BUSULFAN
     Indication: B-cell type acute leukaemia
  5. CYCLOSPORINE [Concomitant]
     Active Substance: CYCLOSPORINE
     Indication: Prophylaxis against graft versus host disease
  6. MYCOPHENOLATE MOFETIL [Concomitant]
     Active Substance: MYCOPHENOLATE MOFETIL
     Indication: Prophylaxis against graft versus host disease

REACTIONS (5)
  - Acute graft versus host disease in skin [Recovered/Resolved]
  - Chronic graft versus host disease in liver [Recovered/Resolved]
  - Primary hypothyroidism [Recovered/Resolved]
  - Failure to thrive [Recovered/Resolved]
  - Lethargy [Recovered/Resolved]
